FAERS Safety Report 6108113-3 (Version None)
Quarter: 2009Q1

REPORT INFORMATION
  Report Type: 
  Country: None (occurrence: None)
  Receive Date: 20090309
  Receipt Date: 20090304
  Transmission Date: 20090719
  Serious: Yes (Other)
  Sender: FDA-Public Use
  Company Number: FR-SANOFI-SYNTHELABO-F01200900221

PATIENT
  Sex: Male

DRUGS (3)
  1. RADIOTHERAPY [Suspect]
     Dates: start: 20080404
  2. OXALIPLATIN [Suspect]
     Indication: COLORECTAL CANCER
     Route: 042
  3. CAPECITABINE [Suspect]
     Dosage: 3000 MG
     Route: 048

REACTIONS (2)
  - FISTULA [None]
  - ILL-DEFINED DISORDER [None]
